FAERS Safety Report 7492333-X (Version None)
Quarter: 2011Q2

REPORT INFORMATION
  Report Type: 
  Country: None (occurrence: None)
  Receive Date: 20110519
  Receipt Date: 20110516
  Transmission Date: 20111010
  Serious: Yes (Hospitalization)
  Sender: FDA-Public Use
  Company Number: US-BAYER-2011-042763

PATIENT
  Sex: Female

DRUGS (1)
  1. YASMIN [Suspect]
     Dosage: UNK
     Dates: start: 20080901, end: 20100101

REACTIONS (5)
  - EMOTIONAL DISTRESS [None]
  - CHOLECYSTECTOMY [None]
  - PAIN [None]
  - INJURY [None]
  - ANHEDONIA [None]
